FAERS Safety Report 4588466-8 (Version None)
Quarter: 2005Q1

REPORT INFORMATION
  Report Type: 
  Country: None (occurrence: None)
  Receive Date: 20050216
  Receipt Date: 20050216
  Transmission Date: 20050727
  Serious: Yes (Life-Threatening, Hospitalization)
  Sender: FDA-Public Use
  Company Number: None

PATIENT
  Sex: Female
  Weight: 48.9885 kg

DRUGS (5)
  1. AVONEX [Suspect]
     Indication: MULTIPLE SCLEROSIS
     Dosage: 30 MCG IM WEEKLY
     Route: 030
     Dates: start: 19970301, end: 20050119
  2. PROPRANOLOL [Concomitant]
  3. SOLU-MEDROL [Concomitant]
  4. PREMARIN [Concomitant]
  5. NEURONTIN [Concomitant]

REACTIONS (9)
  - CHILLS [None]
  - EPISTAXIS [None]
  - IMMUNE SYSTEM DISORDER [None]
  - NASAL CONGESTION [None]
  - NAUSEA [None]
  - PAIN [None]
  - PETECHIAE [None]
  - SNEEZING [None]
  - THROMBOCYTOPENIA [None]
